FAERS Safety Report 7756548-5 (Version None)
Quarter: 2011Q3

REPORT INFORMATION
  Report Type: 
  Country: None (occurrence: None)
  Receive Date: 20110825
  Receipt Date: 20110401
  Transmission Date: 20111222
  Serious: Yes (Hospitalization)
  Sender: FDA-Public Use
  Company Number: 115080

PATIENT
  Age: 70 Year
  Sex: Female
  Weight: 58.9676 kg

DRUGS (1)
  1. ETOPOSIDE [Suspect]
     Indication: MULTIPLE MYELOMA
     Dosage: 61MG IV Q 24 HOURS
     Route: 042
     Dates: start: 20101123, end: 20101126

REACTIONS (2)
  - MENTAL STATUS CHANGES [None]
  - ASTHENIA [None]
